FAERS Safety Report 25427187 (Version 3)
Quarter: 2025Q2

REPORT INFORMATION
  Report Type: Report from Study
  Country: US (occurrence: US)
  Receive Date: 20250612
  Receipt Date: 20250625
  Transmission Date: 20250717
  Serious: Yes (Other)
  Sender: UCB
  Company Number: US-UCBSA-2025034380

PATIENT
  Age: 25 Year
  Sex: Female
  Weight: 73 kg

DRUGS (2)
  1. FINTEPLA [Suspect]
     Active Substance: FENFLURAMINE
     Indication: Severe myoclonic epilepsy of infancy
     Dosage: 3.6 MILLILITER, 2X/DAY (BID)
     Dates: start: 20240509
  2. FINTEPLA [Suspect]
     Active Substance: FENFLURAMINE
     Indication: Seizure

REACTIONS (5)
  - Aortic valve incompetence [Not Recovered/Not Resolved]
  - Tricuspid valve incompetence [Unknown]
  - Mitral valve thickening [Not Recovered/Not Resolved]
  - Pericardial effusion [Not Recovered/Not Resolved]
  - Inferior vena cava dilatation [Not Recovered/Not Resolved]

NARRATIVE: CASE EVENT DATE: 20250523
